FAERS Safety Report 25919881 (Version 1)
Quarter: 2025Q4

REPORT INFORMATION
  Report Type: Spontaneous
  Country: US (occurrence: None)
  Receive Date: 20251009
  Receipt Date: 20251009
  Transmission Date: 20260118
  Serious: No
  Sender: FDA-CTU
  Company Number: None

PATIENT
  Age: 80 Year
  Sex: Female

DRUGS (1)
  1. TERIPARATIDE [Suspect]
     Active Substance: TERIPARATIDE
     Indication: Senile osteoporosis
     Dosage: 20 UG MICROGRAM(S)  DAILY SUBCUTANEOUS ?
     Route: 058
     Dates: start: 20250825

REACTIONS (2)
  - Skin discolouration [None]
  - Heart valve incompetence [None]

NARRATIVE: CASE EVENT DATE: 20250930
